FAERS Safety Report 7263691-6 (Version None)
Quarter: 2011Q1

REPORT INFORMATION
  Report Type: 
  Country: None (occurrence: None)
  Receive Date: 20110130
  Receipt Date: 20101216
  Transmission Date: 20110831
  Serious: No
  Sender: FDA-Public Use
  Company Number: US-ABBOTT-10P-163-0692073-00

PATIENT
  Age: 65 Year
  Sex: Female

DRUGS (9)
  1. ENALAPRIL MALEATE [Concomitant]
     Indication: HYPERTENSION
     Dosage: DAILY
  2. FOLIC ACID [Concomitant]
     Indication: VITAMIN SUPPLEMENTATION
  3. HUMIRA [Suspect]
     Indication: RHEUMATOID ARTHRITIS
     Route: 058
     Dates: start: 20101207
  4. CLONAZEPAM [Concomitant]
     Indication: SLEEP DISORDER
  5. NEXIUM [Concomitant]
     Indication: GASTRIC ULCER
  6. CLONAZEPAM [Concomitant]
     Indication: MUSCLE RELAXANT THERAPY
  7. HYDROCHLOROTHIAZIDE [Concomitant]
     Indication: DIURETIC THERAPY
     Dosage: DAILY
  8. MTX [Concomitant]
     Indication: BEHCET'S SYNDROME
  9. CYMBALTA [Concomitant]
     Indication: PRODUCT USED FOR UNKNOWN INDICATION

REACTIONS (4)
  - INJECTION SITE REACTION [None]
  - FATIGUE [None]
  - INJECTION SITE PRURITUS [None]
  - INJECTION SITE ERYTHEMA [None]
